FAERS Safety Report 4496897-X (Version None)
Quarter: 2004Q3

REPORT INFORMATION
  Report Type: 
  Country: None (occurrence: None)
  Receive Date: 20040928
  Receipt Date: 20040608
  Transmission Date: 20050211
  Serious: No
  Sender: FDA-Public Use
  Company Number: 04P-163-0261305-00

PATIENT
  Age: 56 Year
  Sex: Female
  Weight: 87.0906 kg

DRUGS (7)
  1. HUMIRA [Suspect]
     Indication: RHEUMATOID ARTHRITIS
     Dosage: 40 MG, 1 IN 2 WK, SUBCUTANEOUS
     Route: 058
     Dates: start: 20030819, end: 20040208
  2. PREDNISONE [Concomitant]
  3. ROFECOXIB [Concomitant]
  4. MEPACRINE HYDROCHLORIDE [Concomitant]
  5. METHOTREXATE [Concomitant]
  6. CYCLOSPORINE [Concomitant]
  7. HYDROXYCHLOROQUINE PHOSPHATE [Concomitant]

REACTIONS (2)
  - CUTANEOUS LUPUS ERYTHEMATOSUS [None]
  - SYSTEMIC LUPUS ERYTHEMATOSUS [None]
